FAERS Safety Report 12856751 (Version 1)
Quarter: 2016Q4

REPORT INFORMATION
  Report Type: Spontaneous
  Country: US (occurrence: US)
  Receive Date: 20161018
  Receipt Date: 20161018
  Transmission Date: 20170207
  Serious: No
  Sender: FDA-Public Use
  Company Number: US-PFIZER INC-2016478739

PATIENT
  Age: 60 Year
  Sex: Female

DRUGS (1)
  1. XELJANZ XR [Suspect]
     Active Substance: TOFACITINIB CITRATE
     Indication: RHEUMATOID ARTHRITIS
     Dosage: 11 MG, DAILY

REACTIONS (9)
  - Constipation [Unknown]
  - Impaired work ability [Unknown]
  - Impaired quality of life [Unknown]
  - Joint swelling [Unknown]
  - Headache [Unknown]
  - Arthralgia [Unknown]
  - Joint stiffness [Unknown]
  - Gait disturbance [Unknown]
  - Musculoskeletal stiffness [Unknown]
